FAERS Safety Report 5012731-3 (Version None)
Quarter: 2006Q2

REPORT INFORMATION
  Report Type: 
  Country: None (occurrence: None)
  Receive Date: 20060524
  Receipt Date: 20060512
  Transmission Date: 20061013
  Serious: Yes (Hospitalization)
  Sender: FDA-Public Use
  Company Number: BR-2006-011684

PATIENT
  Age: 49 Year
  Sex: Female

DRUGS (3)
  1. BETASERON [Suspect]
     Indication: MULTIPLE SCLEROSIS
     Dosage: 3X/WEEK, SUBCUTANEOUS
     Route: 058
     Dates: start: 20060301
  2. VENLAFAXINE HCL [Concomitant]
  3. ALPRAZOLAM [Concomitant]

REACTIONS (5)
  - APPENDICITIS [None]
  - ARTHRALGIA [None]
  - INJECTION SITE REACTION [None]
  - PAIN [None]
  - PYREXIA [None]
